FAERS Safety Report 20656680 (Version 1)
Quarter: 2022Q1

REPORT INFORMATION
  Report Type: Spontaneous
  Country: US (occurrence: US)
  Receive Date: 20220331
  Receipt Date: 20220331
  Transmission Date: 20220424
  Serious: Yes (Other)
  Sender: FDA-Public Use
  Company Number: US-CELLTRION INC.-2022US002011

PATIENT

DRUGS (19)
  1. TRUXIMA [Suspect]
     Active Substance: RITUXIMAB-ABBS
     Indication: Mantle cell lymphoma
     Dosage: C1D3, 13 NOV 2021: RITUXIMAB IV, 375 MG/M2/100 MG
     Route: 042
     Dates: start: 20211113
  2. TRUXIMA [Suspect]
     Active Substance: RITUXIMAB-ABBS
     Dosage: C1D3, 13 NOV 2021: RITUXIMAB IV, 375 MG/M2/500 MG
     Route: 042
     Dates: start: 20211113
  3. TRUXIMA [Suspect]
     Active Substance: RITUXIMAB-ABBS
     Dosage: C2D1, 8 DEC 2021: RITUXIMAB IV, 375 MG/M2/100 MG
     Route: 042
     Dates: start: 20211208
  4. TRUXIMA [Suspect]
     Active Substance: RITUXIMAB-ABBS
     Dosage: C2D1, 8 DEC 2021: RITUXIMAB IV, 375 MG/M2/500 MG
     Route: 042
     Dates: start: 20211208
  5. TRUXIMA [Suspect]
     Active Substance: RITUXIMAB-ABBS
     Dosage: C3D1, 5 JAN 2022: RITUXIMAB IV, 375 MG/M2/100 MG
     Route: 042
     Dates: start: 20220105
  6. TRUXIMA [Suspect]
     Active Substance: RITUXIMAB-ABBS
     Dosage: C3D1, 5 JAN 2022: RITUXIMAB IV, 375 MG/M2/500 MG
     Route: 042
     Dates: start: 20220105
  7. TRUXIMA [Suspect]
     Active Substance: RITUXIMAB-ABBS
     Dosage: C4D1, 9 FEB 2022: RITUXIMAB IV, 375 MG/M2/100 MG; INFUSION D/C?ED 37 MINUTES AFTER STARTING DUE TO R
     Route: 042
     Dates: start: 20220209
  8. TRUXIMA [Suspect]
     Active Substance: RITUXIMAB-ABBS
     Dosage: C4D1, 9 FEB 2022: RITUXIMAB IV, 375 MG/M2/500 MG; INFUSION D/C?ED 37 MINUTES AFTER STARTING DUE TO R
     Route: 042
     Dates: start: 20220209
  9. TRUXIMA [Suspect]
     Active Substance: RITUXIMAB-ABBS
     Dosage: 500 MILLIGRAM
     Dates: start: 20220209
  10. TRUXIMA [Suspect]
     Active Substance: RITUXIMAB-ABBS
     Dosage: 100 MILLIGRAM
     Dates: start: 20220209
  11. TRUXIMA [Suspect]
     Active Substance: RITUXIMAB-ABBS
     Dosage: 800 MILLIGRAM (375MG/M2 WEIGHT: 83.4)
     Dates: start: 20211113
  12. TREANDA [Suspect]
     Active Substance: BENDAMUSTINE HYDROCHLORIDE
     Indication: Product used for unknown indication
     Dosage: C1D1, 11 NOV 2021: BENDAMUSTINE IV, 70 MG/M2
     Route: 042
     Dates: start: 20211111
  13. TREANDA [Suspect]
     Active Substance: BENDAMUSTINE HYDROCHLORIDE
     Dosage: C1D2, 12 NOV 2021: BENDAMUSTINE IV, 70 MG/M2
     Route: 042
     Dates: start: 20211112
  14. TREANDA [Suspect]
     Active Substance: BENDAMUSTINE HYDROCHLORIDE
     Dosage: C2D1, 8 DEC 2021:BENDAMUSTINE IV, 70 MG/M2
     Route: 042
     Dates: start: 20211208
  15. TREANDA [Suspect]
     Active Substance: BENDAMUSTINE HYDROCHLORIDE
     Dosage: C2D2, 9 DEC 2021:BENDAMUSTINE IV, 70 MG/M2
     Route: 042
     Dates: start: 20211209
  16. TREANDA [Suspect]
     Active Substance: BENDAMUSTINE HYDROCHLORIDE
     Dosage: C2D2, 9 DEC 2021:BENDAMUSTINE IV, 70 MG/M2
     Route: 042
     Dates: start: 20211209
  17. TREANDA [Suspect]
     Active Substance: BENDAMUSTINE HYDROCHLORIDE
     Dosage: C3D1, 5 JAN 2022: BENDAMUSTINE IV, 70 MG/M2
     Route: 042
     Dates: start: 20220105
  18. TREANDA [Suspect]
     Active Substance: BENDAMUSTINE HYDROCHLORIDE
     Dosage: C3D2, 6 JAN 2022: BENDAMUSTINE IV, 70 MG/M2
     Route: 042
     Dates: start: 20220106
  19. TREANDA [Suspect]
     Active Substance: BENDAMUSTINE HYDROCHLORIDE
     Dosage: C3D2, 6 JAN 2022: BENDAMUSTINE IV, 70 MG/M2
     Route: 042
     Dates: start: 20220106

REACTIONS (3)
  - Infusion related reaction [Recovered/Resolved]
  - Weight decreased [Not Recovered/Not Resolved]
  - Off label use [Unknown]

NARRATIVE: CASE EVENT DATE: 20220209
